FAERS Safety Report 8262010-6 (Version None)
Quarter: 2012Q2

REPORT INFORMATION
  Report Type: 
  Country: None (occurrence: None)
  Receive Date: 20120405
  Receipt Date: 20120330
  Transmission Date: 20120825
  Serious: No
  Sender: FDA-Public Use
  Company Number: US-BAYER-2012-003936

PATIENT
  Age: 55 Year
  Sex: Female

DRUGS (2)
  1. EXTAVIA [Suspect]
     Dosage: 0.25 MG, QOD
     Route: 058
     Dates: end: 20120301
  2. EXTAVIA [Suspect]
     Indication: MULTIPLE SCLEROSIS
     Dosage: 0.125 MG, QOD
     Route: 058
     Dates: start: 20120105

REACTIONS (8)
  - VARICOSE VEIN [None]
  - HYPERSENSITIVITY [None]
  - BONE PAIN [None]
  - BACK PAIN [None]
  - INFLUENZA LIKE ILLNESS [None]
  - NASOPHARYNGITIS [None]
  - ASTHENIA [None]
  - CONTUSION [None]
